FAERS Safety Report 16029350 (Version 1)
Quarter: 2019Q1

REPORT INFORMATION
  Report Type: Spontaneous
  Country: US (occurrence: US)
  Receive Date: 20190204
  Receipt Date: 20190204
  Transmission Date: 20190418
  Serious: Yes (Other)
  Sender: FDA-Public Use
  Company Number: None

PATIENT
  Age: 47 Year
  Sex: Female
  Weight: 67 kg

DRUGS (2)
  1. GEMCITABINE [Suspect]
     Active Substance: GEMCITABINE\GEMCITABINE HYDROCHLORIDE
     Indication: DRUG THERAPY
     Dosage: ?          OTHER FREQUENCY:2X PER CYCLE;?
     Route: 042
     Dates: start: 20171012
  2. RIBOCICLIB. [Suspect]
     Active Substance: RIBOCICLIB
     Indication: DRUG THERAPY
     Dosage: ?          OTHER FREQUENCY:1 DAILY FOR 7 DAYS;?
     Route: 048

REACTIONS (2)
  - Neutropenia [None]
  - Aspartate aminotransferase abnormal [None]

NARRATIVE: CASE EVENT DATE: 20171019
